FAERS Safety Report 6677137-X (Version None)
Quarter: 2010Q2

REPORT INFORMATION
  Report Type: 
  Country: None (occurrence: None)
  Receive Date: 20100412
  Receipt Date: 20100329
  Transmission Date: 20101027
  Serious: Yes (Other)
  Sender: FDA-Public Use
  Company Number: US-PFIZER INC-2010041016

PATIENT
  Sex: Female
  Weight: 55.338 kg

DRUGS (8)
  1. CARDURA [Suspect]
     Indication: HYPERTENSION
     Dosage: 1 MG, 1X/DAY
     Route: 048
     Dates: start: 20100327
  2. BETAXOLOL HYDROCHLORIDE [Concomitant]
  3. NEXIUM [Concomitant]
  4. FOLIC ACID [Concomitant]
  5. DIOVAN [Concomitant]
  6. CLONIDINE [Concomitant]
  7. XANAX [Concomitant]
  8. SYNTHROID [Concomitant]

REACTIONS (5)
  - LISTLESS [None]
  - LOSS OF CONSCIOUSNESS [None]
  - NAUSEA [None]
  - OEDEMA PERIPHERAL [None]
  - SUPRAVENTRICULAR TACHYCARDIA [None]
